FAERS Safety Report 7803258-1 (Version None)
Quarter: 2011Q4

REPORT INFORMATION
  Report Type: 
  Country: None (occurrence: None)
  Receive Date: 20111005
  Receipt Date: 20110927
  Transmission Date: 20120403
  Serious: Yes (Death)
  Sender: FDA-Public Use
  Company Number: 201109078

PATIENT
  Age: 57 Year
  Sex: Male
  Weight: 102.0593 kg

DRUGS (6)
  1. TRILIPIX [Concomitant]
  2. BABY ASPIRINT (ACETYLSALICYLIC ACID) [Concomitant]
  3. METOPROLOL TARTRATE [Concomitant]
  4. XIAFLEX [Suspect]
     Indication: DUPUYTREN'S CONTRACTURE
     Dosage: 0.58 MG, 1 IN 1 D, INTRALESIONAL; 1 IN 1 D, INTRALESIONAL; 1 IN 1 D, INTRALESIONAL
     Route: 026
     Dates: start: 20110927, end: 20110927
  5. XIAFLEX [Suspect]
     Indication: DUPUYTREN'S CONTRACTURE
     Dosage: 0.58 MG, 1 IN 1 D, INTRALESIONAL; 1 IN 1 D, INTRALESIONAL; 1 IN 1 D, INTRALESIONAL
     Route: 026
     Dates: start: 20110426, end: 20110426
  6. XIAFLEX [Suspect]
     Indication: DUPUYTREN'S CONTRACTURE
     Dosage: 0.58 MG, 1 IN 1 D, INTRALESIONAL; 1 IN 1 D, INTRALESIONAL; 1 IN 1 D, INTRALESIONAL
     Route: 026
     Dates: start: 20110726, end: 20110726

REACTIONS (17)
  - SWELLING [None]
  - PAIN [None]
  - PUPIL FIXED [None]
  - CONTUSION [None]
  - ANXIETY [None]
  - DYSPNOEA [None]
  - CYANOSIS [None]
  - ABDOMINAL DISTENSION [None]
  - INJECTION SITE PAIN [None]
  - DIZZINESS [None]
  - VENTRICULAR FIBRILLATION [None]
  - COUGH [None]
  - CARDIO-RESPIRATORY ARREST [None]
  - INJECTION SITE SWELLING [None]
  - INJECTION SITE HAEMATOMA [None]
  - LOSS OF CONSCIOUSNESS [None]
  - PULSE ABSENT [None]
